FAERS Safety Report 9679443 (Version 1)
Quarter: 2013Q4

REPORT INFORMATION
  Report Type: Spontaneous
  Country: US (occurrence: US)
  Receive Date: 20131109
  Receipt Date: 20131109
  Transmission Date: 20140711
  Serious: No
  Sender: FDA-Public Use
  Company Number: US-SANOFI-AVENTIS-2013SA047171

PATIENT
  Sex: Female

DRUGS (3)
  1. ALLEGRA-D [Suspect]
     Indication: HUNGER
     Route: 048
  2. ALLEGRA-D [Suspect]
     Indication: WEIGHT DECREASED
     Route: 048
  3. ALLEGRA 24 HOUR [Concomitant]
     Indication: URTICARIA CHRONIC
     Dates: start: 2011

REACTIONS (1)
  - Off label use [Unknown]
